FAERS Safety Report 23627310 (Version 2)
Quarter: 2024Q1

REPORT INFORMATION
  Report Type: Spontaneous
  Country: NZ (occurrence: NZ)
  Receive Date: 20240313
  Receipt Date: 20240315
  Transmission Date: 20240410
  Serious: Yes (Other)
  Sender: FDA-Public Use
  Company Number: NZ-PFIZER INC-PV202400032584

PATIENT
  Age: 82 Year
  Sex: Female

DRUGS (5)
  1. METHOTREXATE SODIUM [Interacting]
     Active Substance: METHOTREXATE SODIUM
     Dosage: UNK
  2. TRIMETHOPRIM [Interacting]
     Active Substance: TRIMETHOPRIM
     Dosage: UNK
  3. VILDAGLIPTIN [Suspect]
     Active Substance: VILDAGLIPTIN
  4. FOLIC ACID [Concomitant]
     Active Substance: FOLIC ACID
  5. RIVAROXABAN [Concomitant]
     Active Substance: RIVAROXABAN

REACTIONS (4)
  - Drug interaction [Unknown]
  - Pancytopenia [Unknown]
  - Renal failure [Unknown]
  - Mouth ulceration [Unknown]
